FAERS Safety Report 12289882 (Version 1)
Quarter: 2016Q2

REPORT INFORMATION
  Report Type: Spontaneous
  Country: GB (occurrence: GB)
  Receive Date: 20160421
  Receipt Date: 20160421
  Transmission Date: 20160815
  Serious: Yes (Other)
  Sender: FDA-Public Use
  Company Number: GB-SUN PHARMACEUTICAL INDUSTRIES LTD-2016RR-115343

PATIENT
  Age: 58 Year
  Sex: Male
  Weight: 69 kg

DRUGS (1)
  1. ATORVASTATIN [Suspect]
     Active Substance: ATORVASTATIN
     Indication: BLOOD CHOLESTEROL INCREASED
     Route: 048
     Dates: start: 20160119, end: 20160323

REACTIONS (6)
  - Myalgia [Recovered/Resolved with Sequelae]
  - Chromaturia [Recovered/Resolved with Sequelae]
  - Malaise [Recovering/Resolving]
  - Abdominal pain upper [Recovered/Resolved with Sequelae]
  - Decreased appetite [Recovered/Resolved with Sequelae]
  - Fatigue [Recovering/Resolving]
